FAERS Safety Report 9925354 (Version 4)
Quarter: 2014Q2

REPORT INFORMATION
  Report Type: Spontaneous
  Country: US (occurrence: US)
  Receive Date: 20140226
  Receipt Date: 20140509
  Transmission Date: 20141212
  Serious: Yes (Other)
  Sender: FDA-Public Use
  Company Number: US-JNJFOC-20140211830

PATIENT
  Age: 80 Year
  Sex: Male
  Weight: 93.9 kg

DRUGS (9)
  1. INVOKANA [Suspect]
     Indication: TYPE 2 DIABETES MELLITUS
     Route: 048
     Dates: start: 20140214, end: 20140216
  2. INVOKANA [Suspect]
     Indication: TYPE 2 DIABETES MELLITUS
     Route: 048
     Dates: start: 20140114, end: 201402
  3. LIPITOR [Concomitant]
     Indication: BLOOD CHOLESTEROL
     Route: 048
  4. PAXIL [Concomitant]
     Indication: STRESS
     Route: 048
  5. PAXIL [Concomitant]
     Indication: ANXIETY
     Route: 048
  6. LISINOPRIL [Concomitant]
  7. FLOMAX [Concomitant]
  8. POTASSIUM CITRATE [Concomitant]
  9. BENADRYL [Concomitant]
     Indication: SEASONAL ALLERGY

REACTIONS (11)
  - Eye swelling [Not Recovered/Not Resolved]
  - Blindness [Not Recovered/Not Resolved]
  - Dysuria [Recovered/Resolved]
  - Eye pain [Unknown]
  - Periorbital contusion [Unknown]
  - Urinary retention [Recovered/Resolved]
  - Eye pruritus [Not Recovered/Not Resolved]
  - Constipation [Recovered/Resolved]
  - Abdominal pain upper [Recovered/Resolved]
  - Blood glucose increased [Unknown]
  - Frequent bowel movements [Recovering/Resolving]
